FAERS Safety Report 7523894-X (Version None)
Quarter: 2011Q2

REPORT INFORMATION
  Report Type: 
  Country: None (occurrence: None)
  Receive Date: 20110603
  Receipt Date: 20110527
  Transmission Date: 20111010
  Serious: Yes (Other)
  Sender: FDA-Public Use
  Company Number: US-MERCK-1105USA04072

PATIENT
  Age: 20 Year
  Sex: Male

DRUGS (1)
  1. IVEMEND [Suspect]
     Route: 042
     Dates: start: 20110501

REACTIONS (2)
  - DYSPNOEA [None]
  - SKIN DISCOLOURATION [None]
